FAERS Safety Report 8955254 (Version 2)
Quarter: 2012Q4

REPORT INFORMATION
  Report Type: 
  Country: US (occurrence: US)
  Receive Date: 20121210
  Receipt Date: 20121227
  Transmission Date: 20130627
  Serious: No
  Sender: FDA-Public Use
  Company Number: US-PFIZER INC-2012310089

PATIENT
  Age: 50 Year
  Sex: Male
  Weight: 67.12 kg

DRUGS (3)
  1. CHANTIX [Suspect]
     Indication: SMOKING CESSATION THERAPY
     Dosage: 0.5 mg, 1x/day
     Route: 048
     Dates: start: 201002, end: 2010
  2. CHANTIX [Suspect]
     Dosage: 1 mg, 2x/day
     Route: 048
     Dates: start: 2010, end: 201003
  3. FEXOFENADINE [Concomitant]
     Indication: ALLERGY
     Dosage: 180 mg, UNK

REACTIONS (1)
  - Anger [Recovered/Resolved]
